FAERS Safety Report 5332148-1 (Version None)
Quarter: 2007Q2

REPORT INFORMATION
  Report Type: 
  Country: None (occurrence: None)
  Receive Date: 20070521
  Receipt Date: 20070504
  Transmission Date: 20071010
  Serious: Yes (Disabling)
  Sender: FDA-Public Use
  Company Number: S07-FRA-02030-01

PATIENT
  Age: 28 Year
  Sex: Female

DRUGS (1)
  1. ESCITALOPRAM [Suspect]
     Indication: DEPRESSION
     Dosage: 10 MG QD PO
     Route: 048
     Dates: start: 20060626, end: 20070315

REACTIONS (4)
  - ANAEMIA [None]
  - ASTHENIA [None]
  - IRON DEFICIENCY [None]
  - MENOMETRORRHAGIA [None]
